FAERS Safety Report 5823926-0 (Version None)
Quarter: 2008Q3

REPORT INFORMATION
  Report Type: 
  Country: None (occurrence: None)
  Receive Date: 20080724
  Receipt Date: 20080721
  Transmission Date: 20090109
  Serious: Yes (Death)
  Sender: FDA-Public Use
  Company Number: 2008SP014354

PATIENT
  Sex: Male

DRUGS (1)
  1. TEMODAR [Suspect]
     Indication: LUNG CANCER METASTATIC
     Dosage: PO
     Route: 048
     Dates: end: 20071109

REACTIONS (1)
  - MALIGNANT NEOPLASM PROGRESSION [None]
